FAERS Safety Report 16970367 (Version 2)
Quarter: 2019Q4

REPORT INFORMATION
  Report Type: Report from Study
  Country: None (occurrence: NL)
  Receive Date: 20191029
  Receipt Date: 20191205
  Transmission Date: 20200122
  Serious: Yes (Hospitalization)
  Sender: FDA-Public Use
  Company Number: NL-ABBVIE-19K-114-2977490-00

PATIENT
  Age: 3 Month
  Sex: Male
  Weight: 4.96 kg

DRUGS (3)
  1. SYNAGIS [Suspect]
     Active Substance: PALIVIZUMAB
     Indication: ANTIVIRAL PROPHYLAXIS
     Route: 030
     Dates: start: 20191002, end: 20191002
  2. SYNAGIS [Suspect]
     Active Substance: PALIVIZUMAB
     Route: 030
     Dates: start: 20191129, end: 20191129
  3. SYNAGIS [Suspect]
     Active Substance: PALIVIZUMAB
     Route: 030
     Dates: start: 20191031, end: 20191031

REACTIONS (5)
  - Infection [Unknown]
  - Dehydration [Unknown]
  - Malaise [Unknown]
  - Vomiting [Unknown]
  - Hospitalisation [Unknown]

NARRATIVE: CASE EVENT DATE: 201910
